FAERS Safety Report 7168016-2 (Version None)
Quarter: 2010Q4

REPORT INFORMATION
  Report Type: 
  Country: None (occurrence: None)
  Receive Date: 20101216
  Receipt Date: 20101130
  Transmission Date: 20110411
  Serious: No
  Sender: FDA-Public Use
  Company Number: US-B.I. PHARMACEUTICALS,INC./RIDGEFIELD-2010-BP-13548BP

PATIENT
  Age: 77 Year
  Sex: Female

DRUGS (9)
  1. PRADAXA [Suspect]
     Indication: ATRIAL FIBRILLATION
     Dosage: 300 MG
     Route: 048
     Dates: start: 20101123
  2. REVLIMID [Concomitant]
     Indication: MULTIPLE MYELOMA
     Dosage: 10 MG
  3. DEXAMETHASONE [Concomitant]
     Indication: STEROID THERAPY
     Dosage: 10 MG
  4. METOPROLOL [Concomitant]
     Indication: HYPERTENSION
  5. CALCIUM/VITAMIN D [Concomitant]
     Indication: PROPHYLAXIS
  6. CRESTOR [Concomitant]
     Indication: BLOOD CHOLESTEROL INCREASED
  7. HYDRALAZINE [Concomitant]
     Indication: HYPERTENSION
  8. EYE DROPS [Concomitant]
     Indication: EYE DISORDER
  9. ALBUTEROL [Concomitant]
     Indication: DYSPNOEA

REACTIONS (3)
  - EPISTAXIS [None]
  - HEADACHE [None]
  - OCULAR HYPERAEMIA [None]
